FAERS Safety Report 9786383 (Version 2)
Quarter: 2014Q2

REPORT INFORMATION
  Report Type: Report from Study
  Country: US (occurrence: US)
  Receive Date: 20131227
  Receipt Date: 20140403
  Transmission Date: 20141212
  Serious: Yes (Other)
  Sender: FDA-Public Use
  Company Number: US-US-EMD SERONO, INC.-7259344

PATIENT
  Age: 61 Year
  Sex: Female

DRUGS (1)
  1. REBIF [Suspect]
     Indication: PRODUCT USED FOR UNKNOWN INDICATION
     Route: 058
     Dates: start: 201203

REACTIONS (2)
  - Cerebrovascular accident [Unknown]
  - Influenza like illness [Not Recovered/Not Resolved]
